FAERS Safety Report 25630653 (Version 1)
Quarter: 2025Q3

REPORT INFORMATION
  Report Type: Spontaneous
  Country: US (occurrence: US)
  Receive Date: 20250801
  Receipt Date: 20250801
  Transmission Date: 20251021
  Serious: No
  Sender: ELI LILLY AND COMPANY
  Company Number: US-ELI_LILLY_AND_COMPANY-US202507026102

PATIENT
  Age: 23 Year
  Sex: Female

DRUGS (2)
  1. EBGLYSS [Suspect]
     Active Substance: LEBRIKIZUMAB-LBKZ
     Indication: Eczema
     Route: 065
     Dates: start: 202502
  2. EBGLYSS [Suspect]
     Active Substance: LEBRIKIZUMAB-LBKZ
     Dosage: 250 MG, MONTHLY (1/M)
     Route: 065
     Dates: start: 202507

REACTIONS (2)
  - Eczema [Not Recovered/Not Resolved]
  - Rash [Not Recovered/Not Resolved]

NARRATIVE: CASE EVENT DATE: 20250701
